FAERS Safety Report 9928758 (Version 1)
Quarter: 2014Q1

REPORT INFORMATION
  Report Type: Spontaneous
  Country: CA (occurrence: CA)
  Receive Date: 20140227
  Receipt Date: 20140227
  Transmission Date: 20141002
  Serious: Yes (Other)
  Sender: FDA-Public Use
  Company Number: CA-MERCK-1402CAN013018

PATIENT
  Age: 58 Year
  Sex: Female
  Weight: 70.3 kg

DRUGS (11)
  1. EZETROL [Suspect]
     Dosage: 10 MG, QD
     Route: 065
  2. REMERON [Concomitant]
     Dosage: UNK
     Route: 048
  3. HYDROCHLOROTHIAZIDE [Concomitant]
     Dosage: UNK
     Route: 048
  4. COVERSYL (PERINDOPRIL ARGININE) [Concomitant]
     Dosage: UNK
     Route: 048
  5. DIVALPROEX SODIUM [Concomitant]
     Dosage: UNK
     Route: 065
  6. HYDROMORPH CONTIN [Concomitant]
     Dosage: UNK
     Route: 048
  7. ISOPTIN SR [Concomitant]
     Dosage: UNK
     Route: 048
  8. LIPITOR [Concomitant]
     Dosage: UNK
     Route: 048
  9. PREVACID [Concomitant]
     Dosage: UNK
     Route: 065
  10. WELLBUTRIN XL [Concomitant]
     Dosage: UNK
     Route: 048
  11. ASPIRIN [Concomitant]
     Dosage: UNK
     Route: 048

REACTIONS (1)
  - Deafness bilateral [Recovered/Resolved]
